FAERS Safety Report 9803745 (Version 1)
Quarter: 2014Q1

REPORT INFORMATION
  Report Type: Spontaneous
  Country: US (occurrence: US)
  Receive Date: 20140108
  Receipt Date: 20140108
  Transmission Date: 20141002
  Serious: No
  Sender: FDA-Public Use
  Company Number: US-GLAXOSMITHKLINE-A1031554A

PATIENT
  Age: 52 Year
  Sex: Female

DRUGS (3)
  1. LOVAZA [Suspect]
     Indication: BLOOD TRIGLYCERIDES INCREASED
     Dosage: 1000MG TWICE PER DAY
     Route: 048
     Dates: start: 201306
  2. AMOXICILLIN [Concomitant]
  3. MUCINEX [Concomitant]

REACTIONS (4)
  - Abdominal discomfort [Recovering/Resolving]
  - Fatigue [Recovering/Resolving]
  - Somnolence [Recovering/Resolving]
  - Nasopharyngitis [Recovering/Resolving]
